FAERS Safety Report 7671825-4 (Version None)
Quarter: 2011Q3

REPORT INFORMATION
  Report Type: 
  Country: None (occurrence: None)
  Receive Date: 20110809
  Receipt Date: 20110727
  Transmission Date: 20111222
  Serious: Yes (Other)
  Sender: FDA-Public Use
  Company Number: JP-ROCHE-793414

PATIENT
  Age: 78 Year
  Sex: Female
  Weight: 40 kg

DRUGS (10)
  1. CALBLOCK [Concomitant]
     Route: 048
  2. PREDNISOLONE [Concomitant]
     Route: 048
  3. CRESTOR [Concomitant]
     Route: 048
  4. LANSOPRAZOLE [Concomitant]
     Route: 048
  5. DIOVAN [Concomitant]
     Route: 048
  6. FESIN [Suspect]
     Indication: IRON DEFICIENCY ANAEMIA
     Route: 041
     Dates: start: 20110713
  7. GLYBURIDE [Concomitant]
     Route: 048
  8. ASPIRIN [Concomitant]
     Route: 048
  9. ACTEMRA [Suspect]
     Indication: RHEUMATOID ARTHRITIS
     Route: 041
     Dates: start: 20110713, end: 20110713
  10. DIAZEPAM [Suspect]
     Indication: SEDATION
     Dosage: DOSAGE IS UNCERTAIN
     Route: 042
     Dates: start: 20110713

REACTIONS (1)
  - PHLEBITIS [None]
